FAERS Safety Report 12648209 (Version 1)
Quarter: 2016Q3

REPORT INFORMATION
  Report Type: Spontaneous
  Country: TW (occurrence: TW)
  Receive Date: 20160812
  Receipt Date: 20160812
  Transmission Date: 20161109
  Serious: Yes (Hospitalization)
  Sender: FDA-Public Use
  Company Number: TW-PFIZER INC-2016370915

PATIENT
  Age: 38 Year
  Sex: Male

DRUGS (2)
  1. KETAMINE HCL [Suspect]
     Active Substance: KETAMINE HYDROCHLORIDE
     Dosage: INCREASED HIS KETAMINE DOSE TO 10 G FOR SELF-MEDICATION
  2. KETAMINE HCL [Suspect]
     Active Substance: KETAMINE HYDROCHLORIDE
     Indication: SUBSTANCE USE
     Dosage: CONSUMPTION UP TO 6 G, DAILY

REACTIONS (2)
  - Major depression [Recovered/Resolved]
  - Drug dependence [Unknown]
